FAERS Safety Report 19600562 (Version 1)
Quarter: 2021Q3

REPORT INFORMATION
  Report Type: Spontaneous
  Country: US (occurrence: US)
  Receive Date: 20210723
  Receipt Date: 20210723
  Transmission Date: 20211014
  Serious: Yes (Other)
  Sender: FDA-Public Use
  Company Number: US-STRIDES ARCOLAB LIMITED-2020SP012517

PATIENT
  Age: 58 Year
  Sex: Male

DRUGS (2)
  1. CYCLOVIR [Suspect]
     Active Substance: ACYCLOVIR
     Indication: BONE MARROW TRANSPLANT
     Dosage: UNK
     Route: 065
  2. MYCOPHENOLATE MOFETIL. [Suspect]
     Active Substance: MYCOPHENOLATE MOFETIL
     Indication: BONE MARROW TRANSPLANT
     Dosage: UNK
     Route: 065

REACTIONS (2)
  - Graft versus host disease [Unknown]
  - Polyomavirus-associated nephropathy [Unknown]
